FAERS Safety Report 13612806 (Version 1)
Quarter: 2017Q2

REPORT INFORMATION
  Report Type: Spontaneous
  Country: US (occurrence: US)
  Receive Date: 20170605
  Receipt Date: 20170605
  Transmission Date: 20170830
  Serious: Yes (Life-Threatening)
  Sender: FDA-Public Use
  Company Number: US-CORDEN PHARMA LATINA S.P.A.-US-2017COR000133

PATIENT
  Age: 38 Year
  Sex: Male

DRUGS (5)
  1. CYCLOPHOSPHAMIDE. [Suspect]
     Active Substance: CYCLOPHOSPHAMIDE
     Indication: MYCOSIS FUNGOIDES
     Dosage: UNK, 2 CYCLES
  2. VINCRISTINE [Suspect]
     Active Substance: VINCRISTINE
     Indication: MYCOSIS FUNGOIDES
     Dosage: UNK, 2 CYCLES
  3. ETOPOSIDE. [Suspect]
     Active Substance: ETOPOSIDE
     Indication: MYCOSIS FUNGOIDES
     Dosage: UNK, 2 CYCLES
  4. BRENTUXIMAB VEDOTIN [Suspect]
     Active Substance: BRENTUXIMAB VEDOTIN
     Indication: MYCOSIS FUNGOIDES
     Dosage: 1.8 MG/KG, SINGLE
  5. PREDNISONE. [Suspect]
     Active Substance: PREDNISONE
     Indication: MYCOSIS FUNGOIDES
     Dosage: UNK, 2 CYCLES

REACTIONS (1)
  - Intestinal perforation [Recovered/Resolved]
